FAERS Safety Report 6033340-3 (Version None)
Quarter: 2009Q1

REPORT INFORMATION
  Report Type: 
  Country: None (occurrence: None)
  Receive Date: 20090109
  Receipt Date: 20081010
  Transmission Date: 20090719
  Serious: No
  Sender: FDA-Public Use
  Company Number: A0751357A

PATIENT
  Age: 69 Year
  Sex: Female

DRUGS (3)
  1. REQUIP XL [Suspect]
     Indication: PARKINSON'S DISEASE
     Dosage: 8MG PER DAY
     Route: 048
     Dates: start: 20080901
  2. AMITRIPTYLINE HCL [Concomitant]
  3. PRAVASTATIN [Concomitant]

REACTIONS (1)
  - DYSKINESIA [None]
